FAERS Safety Report 9760935 (Version 1)
Quarter: 2013Q4

REPORT INFORMATION
  Report Type: Spontaneous
  Country: NL (occurrence: NL)
  Receive Date: 20131216
  Receipt Date: 20131216
  Transmission Date: 20140711
  Serious: Yes (Death)
  Sender: FDA-Public Use
  Company Number: NL-PFIZER INC-2013356603

PATIENT
  Age: 83 Year
  Sex: Male

DRUGS (1)
  1. SOMAVERT [Suspect]
     Indication: ACROMEGALY
     Dosage: 15 MG, 1X/DAY
     Route: 058
     Dates: start: 20130717

REACTIONS (1)
  - Cardiac arrest [Fatal]
